FAERS Safety Report 6475023-1 (Version None)
Quarter: 2009Q4

REPORT INFORMATION
  Report Type: 
  Country: None (occurrence: None)
  Receive Date: 20091204
  Receipt Date: 20090323
  Transmission Date: 20100525
  Serious: Yes (Hospitalization)
  Sender: FDA-Public Use
  Company Number: ES-ELI_LILLY_AND_COMPANY-ES200903006408

PATIENT
  Age: 62 Year
  Sex: Male

DRUGS (2)
  1. PEMETREXED [Suspect]
     Dosage: 500 MG/M2, DAY 1
  2. GEMZAR [Suspect]
     Dosage: 1250 MG/M2, DAY 1 + 8

REACTIONS (2)
  - RESPIRATORY MONILIASIS [None]
  - STILL'S DISEASE ADULT ONSET [None]
